FAERS Safety Report 6811181-4 (Version None)
Quarter: 2010Q2

REPORT INFORMATION
  Report Type: 
  Country: None (occurrence: None)
  Receive Date: 20100630
  Receipt Date: 20090623
  Transmission Date: 20101027
  Serious: Yes (Other)
  Sender: FDA-Public Use
  Company Number: US-AMGEN-KDL353046

PATIENT
  Age: 60 Year
  Sex: Male

DRUGS (1)
  1. PROCRIT [Suspect]
     Indication: PREOPERATIVE CARE

REACTIONS (1)
  - THROMBOSIS [None]
